FAERS Safety Report 16266452 (Version 1)
Quarter: 2019Q2

REPORT INFORMATION
  Report Type: Report from Study
  Country: IN (occurrence: IN)
  Receive Date: 20190502
  Receipt Date: 20190502
  Transmission Date: 20190711
  Serious: Yes (Death)
  Sender: FDA-Public Use
  Company Number: PHHY2019IN100447

PATIENT
  Age: 40 Year
  Sex: Male

DRUGS (2)
  1. VOTRIENT [Suspect]
     Active Substance: PAZOPANIB HYDROCHLORIDE
     Dosage: 200 MG, BID
     Route: 048
     Dates: start: 20181127
  2. VOTRIENT [Suspect]
     Active Substance: PAZOPANIB HYDROCHLORIDE
     Indication: METASTATIC RENAL CELL CARCINOMA
     Dosage: 400 MG, BID
     Route: 048
     Dates: start: 201807, end: 20180927

REACTIONS (1)
  - Death [Fatal]

NARRATIVE: CASE EVENT DATE: 20190414
